FAERS Safety Report 9456306 (Version 1)
Quarter: 2013Q3

REPORT INFORMATION
  Report Type: Spontaneous
  Country: GB (occurrence: GB)
  Receive Date: 20130813
  Receipt Date: 20130813
  Transmission Date: 20140515
  Serious: Yes (Other)
  Sender: FDA-Public Use
  Company Number: GB-SANOFI-AVENTIS-2013SA079209

PATIENT
  Age: 37 Year
  Sex: Female
  Weight: 52 kg

DRUGS (6)
  1. TRENTAL [Suspect]
     Indication: IN VITRO FERTILISATION
     Route: 048
     Dates: start: 20121121, end: 20121126
  2. SYNAREL [Concomitant]
  3. PROGYNOVA [Concomitant]
  4. VITAMIN E [Concomitant]
  5. ASPIRIN [Concomitant]
  6. ESTRADERM [Concomitant]

REACTIONS (2)
  - Paraesthesia [Recovered/Resolved]
  - Sensory disturbance [Recovered/Resolved]
